FAERS Safety Report 26040790 (Version 1)
Quarter: 2025Q4

REPORT INFORMATION
  Report Type: Report from Study
  Country: US (occurrence: US)
  Receive Date: 20251113
  Receipt Date: 20251113
  Transmission Date: 20260118
  Serious: Yes (Other)
  Sender: TAKEDA
  Company Number: US-TAKEDA-2025TUS099742

PATIENT
  Age: 88 Year
  Sex: Female

DRUGS (1)
  1. VEDOLIZUMAB [Suspect]
     Active Substance: VEDOLIZUMAB
     Indication: Product used for unknown indication
     Dosage: 300 MILLIGRAM

REACTIONS (25)
  - Open angle glaucoma [Unknown]
  - Aortic valve incompetence [Unknown]
  - Chronic kidney disease [Unknown]
  - Carotid artery stenosis [Unknown]
  - Hypokalaemia [Unknown]
  - Clostridium difficile infection [Unknown]
  - Arthritis enteropathic [Unknown]
  - Blood thyroid stimulating hormone abnormal [Unknown]
  - Gastrooesophageal reflux disease [Unknown]
  - Oesophagitis [Unknown]
  - Hiatus hernia [Unknown]
  - Gait disturbance [Unknown]
  - Oral herpes [Unknown]
  - Anaemia of chronic disease [Unknown]
  - Type V hyperlipidaemia [Unknown]
  - Psoriasis [Unknown]
  - Vitamin D deficiency [Unknown]
  - Spinal osteoarthritis [Unknown]
  - Insomnia [Unknown]
  - Osteopenia [Unknown]
  - Pulmonary mass [Unknown]
  - Lumbar radiculopathy [Unknown]
  - Trigger finger [Unknown]
  - Hypertension [Unknown]
  - Constipation [Unknown]
